FAERS Safety Report 19011919 (Version 1)
Quarter: 2021Q1

REPORT INFORMATION
  Report Type: Spontaneous
  Country: US (occurrence: US)
  Receive Date: 20210315
  Receipt Date: 20210315
  Transmission Date: 20210420
  Serious: No
  Sender: FDA-Public Use
  Company Number: US-PFIZER INC-2020494308

PATIENT
  Age: 50 Year
  Sex: Male

DRUGS (20)
  1. XELJANZ XR [Suspect]
     Active Substance: TOFACITINIB CITRATE
     Indication: AUTONOMIC NEUROPATHY
  2. XELJANZ XR [Suspect]
     Active Substance: TOFACITINIB CITRATE
     Indication: TYPE 2 DIABETES MELLITUS
  3. LYRICA [Concomitant]
     Active Substance: PREGABALIN
  4. HUMALOG [Concomitant]
     Active Substance: INSULIN LISPRO
  5. LOSARTAN. [Concomitant]
     Active Substance: LOSARTAN
  6. METHOTREXATE. [Concomitant]
     Active Substance: METHOTREXATE
  7. TRESIBA [Concomitant]
     Active Substance: INSULIN DEGLUDEC
  8. XELJANZ XR [Suspect]
     Active Substance: TOFACITINIB CITRATE
     Indication: NEUROPATHIC ARTHROPATHY
  9. PRED FORTE [Concomitant]
     Active Substance: PREDNISOLONE ACETATE
  10. JARDIANCE [Concomitant]
     Active Substance: EMPAGLIFLOZIN
  11. VITAMIN D3 [Concomitant]
     Active Substance: CHOLECALCIFEROL
  12. ALENDRONATE [Concomitant]
     Active Substance: ALENDRONATE SODIUM
  13. XELJANZ XR [Suspect]
     Active Substance: TOFACITINIB CITRATE
     Indication: BONE DENSITY ABNORMAL
  14. FOLIC ACID. [Concomitant]
     Active Substance: FOLIC ACID
  15. METFORMIN [Concomitant]
     Active Substance: METFORMIN HYDROCHLORIDE
  16. PANTOPRAZOLE [Concomitant]
     Active Substance: PANTOPRAZOLE
  17. METOPROLOL. [Concomitant]
     Active Substance: METOPROLOL
  18. XELJANZ XR [Suspect]
     Active Substance: TOFACITINIB CITRATE
     Indication: RHEUMATOID ARTHRITIS
     Dosage: 11 MG, 1X/DAY
     Route: 048
     Dates: start: 202012
  19. PREDNISONE. [Concomitant]
     Active Substance: PREDNISONE
  20. VICTOZA [Concomitant]
     Active Substance: LIRAGLUTIDE

REACTIONS (1)
  - Anxiety [Unknown]
